FAERS Safety Report 15384884 (Version 1)
Quarter: 2018Q3

REPORT INFORMATION
  Report Type: Spontaneous
  Country: US (occurrence: US)
  Receive Date: 20180914
  Receipt Date: 20180914
  Transmission Date: 20181010
  Serious: No
  Sender: FDA-Public Use
  Company Number: US-PFIZER INC-2018362041

PATIENT
  Age: 64 Year
  Sex: Female
  Weight: 61.22 kg

DRUGS (1)
  1. LATANOPROST. [Suspect]
     Active Substance: LATANOPROST
     Indication: GLAUCOMA
     Dosage: 2 GTT, 1X/DAY (2.5 ML, ONE DROP IN EACH EYE IN EVENING)
     Route: 047
     Dates: start: 2003

REACTIONS (5)
  - Drug administration error [Unknown]
  - Superficial injury of eye [Unknown]
  - Eye irritation [Not Recovered/Not Resolved]
  - Product storage error [Unknown]
  - Foreign body sensation in eyes [Not Recovered/Not Resolved]
